FAERS Safety Report 24650047 (Version 1)
Quarter: 2024Q4

REPORT INFORMATION
  Report Type: Spontaneous
  Country: CN (occurrence: CN)
  Receive Date: 20241122
  Receipt Date: 20241122
  Transmission Date: 20250114
  Serious: Yes (Hospitalization, Other)
  Sender: NOVO NORDISK
  Company Number: CN-NOVOPROD-1318008

PATIENT
  Age: 77 Year
  Sex: Female
  Weight: 90 kg

DRUGS (3)
  1. INSULIN ASPART [Suspect]
     Active Substance: INSULIN ASPART
     Indication: Type 2 diabetes mellitus
     Dosage: TID
     Dates: start: 2005
  2. INSULIN ASPART [Suspect]
     Active Substance: INSULIN ASPART
     Dosage: 12 IU, TID
  3. INSULIN ASPART [Suspect]
     Active Substance: INSULIN ASPART
     Dosage: 22 IU, TID

REACTIONS (2)
  - Renal failure [Unknown]
  - Blood glucose increased [Unknown]
